FAERS Safety Report 4616692-8 (Version None)
Quarter: 2005Q1

REPORT INFORMATION
  Report Type: 
  Country: None (occurrence: None)
  Receive Date: 20050321
  Receipt Date: 20041124
  Transmission Date: 20050727
  Serious: Yes (Death, Life-Threatening)
  Sender: FDA-Public Use
  Company Number: 05GER0082

PATIENT
  Age: 81 Year
  Sex: Female

DRUGS (1)
  1. AGGRASTAT [Suspect]
     Dates: start: 20040101, end: 20040415

REACTIONS (1)
  - BASILAR ARTERY THROMBOSIS [None]
